FAERS Safety Report 9225194 (Version 2)
Quarter: 2013Q2

REPORT INFORMATION
  Report Type: Spontaneous
  Country: US (occurrence: US)
  Receive Date: 20130411
  Receipt Date: 20130503
  Transmission Date: 20140414
  Serious: Yes (Hospitalization, Other)
  Sender: FDA-Public Use
  Company Number: US-JNJFOC-20130401673

PATIENT
  Age: 46 Year
  Sex: Male

DRUGS (3)
  1. REMICADE [Suspect]
     Indication: PSORIASIS
     Dosage: ON INFLIXIMAB FOR 7 YEARS
     Route: 042
     Dates: start: 2005
  2. REMICADE [Suspect]
     Indication: RHEUMATOID ARTHRITIS
     Dosage: ON INFLIXIMAB FOR 7 YEARS
     Route: 042
     Dates: start: 2005
  3. LOSARTAN [Concomitant]
     Indication: HYPERTENSION
     Route: 065

REACTIONS (2)
  - Meningitis aseptic [Recovered/Resolved]
  - Sarcoidosis [Recovered/Resolved]
